FAERS Safety Report 7135684-0 (Version None)
Quarter: 2010Q4

REPORT INFORMATION
  Report Type: 
  Country: None (occurrence: None)
  Receive Date: 20101203
  Receipt Date: 20101129
  Transmission Date: 20110411
  Serious: Yes (Death, Hospitalization)
  Sender: FDA-Public Use
  Company Number: JP-ROCHE-745876

PATIENT
  Age: 84 Year
  Sex: Male

DRUGS (2)
  1. AVASTIN [Suspect]
     Indication: LUNG ADENOCARCINOMA
     Route: 041
     Dates: start: 20101004
  2. ALIMTA [Suspect]
     Indication: LUNG ADENOCARCINOMA
     Dosage: NOTE: DOSAGE IS UNCERTAIN.
     Route: 041

REACTIONS (1)
  - INTERSTITIAL LUNG DISEASE [None]
